FAERS Safety Report 15940760 (Version 1)
Quarter: 2019Q1

REPORT INFORMATION
  Report Type: Spontaneous
  Country: FR (occurrence: FR)
  Receive Date: 20190208
  Receipt Date: 20190208
  Transmission Date: 20190417
  Serious: Yes (Hospitalization)
  Sender: FDA-Public Use
  Company Number: FR-REGENERON PHARMACEUTICALS, INC.-2019-15392

PATIENT

DRUGS (2)
  1. SPEDRA [Suspect]
     Active Substance: AVANAFIL
     Indication: SEXUAL DYSFUNCTION
     Dosage: 1 DF, UNK
     Route: 048
     Dates: start: 2016
  2. EYLEA [Suspect]
     Active Substance: AFLIBERCEPT
     Indication: AGE-RELATED MACULAR DEGENERATION
     Dosage: 1 DF, TOTAL EYLEA DOSE AND LAST DOSE WERE UNKNOWN
     Route: 031

REACTIONS (1)
  - Splenic infarction [Recovered/Resolved]

NARRATIVE: CASE EVENT DATE: 20181114
